FAERS Safety Report 25946853 (Version 1)
Quarter: 2025Q4

REPORT INFORMATION
  Report Type: Spontaneous
  Country: KR (occurrence: KR)
  Receive Date: 20251022
  Receipt Date: 20251022
  Transmission Date: 20260118
  Serious: Yes (Other)
  Sender: CELLTRION
  Company Number: KR-CELLTRION INC.-2025KR037605

PATIENT

DRUGS (4)
  1. INFLIXIMAB [Suspect]
     Active Substance: INFLIXIMAB
     Indication: Crohn^s disease
     Dosage: 120 MG, ONCE/2WEEKS
     Route: 058
     Dates: start: 20240614
  2. INFLIXIMAB [Suspect]
     Active Substance: INFLIXIMAB
     Dosage: 120 MG, ONCE/2WEEKS
     Route: 058
     Dates: start: 20251012
  3. URSODIOL [Concomitant]
     Active Substance: URSODIOL
     Dosage: 1 TAB TID, SINCE 5 YEARS BEFORE
     Route: 048
  4. AERIUS (DESLORATADINE) [Concomitant]
     Active Substance: DESLORATADINE
     Dosage: 1 DF, QD
     Route: 048
     Dates: start: 202406

REACTIONS (3)
  - Pharyngeal swelling [Recovered/Resolved]
  - Vomiting [Recovered/Resolved]
  - Dizziness [Recovered/Resolved]

NARRATIVE: CASE EVENT DATE: 20251012
